FAERS Safety Report 10330633 (Version 1)
Quarter: 2014Q3

REPORT INFORMATION
  Report Type: Spontaneous
  Country: US (occurrence: None)
  Receive Date: 20140718
  Receipt Date: 20140718
  Transmission Date: 20150326
  Serious: No
  Sender: FDA-Public Use
  Company Number: None

PATIENT
  Age: 45 Year
  Sex: Female
  Weight: 108.86 kg

DRUGS (1)
  1. LEVOFLOXACIN [Suspect]
     Active Substance: LEVOFLOXACIN
     Indication: BRONCHITIS
     Dosage: 1 DAILY, ONCE DAILY, TAKEN BY MOUTH
     Route: 048
     Dates: start: 20140421, end: 20140423

REACTIONS (3)
  - Insomnia [None]
  - Self injurious behaviour [None]
  - Hallucination [None]

NARRATIVE: CASE EVENT DATE: 20140421
